FAERS Safety Report 8003784-9 (Version None)
Quarter: 2011Q4

REPORT INFORMATION
  Report Type: 
  Country: None (occurrence: None)
  Receive Date: 20111222
  Receipt Date: 20111219
  Transmission Date: 20120403
  Serious: No
  Sender: FDA-Public Use
  Company Number: US-BAYER-2011-119854

PATIENT

DRUGS (2)
  1. ALEVE (CAPLET) [Suspect]
     Indication: HEADACHE
     Dosage: 2 DF, PRN
     Route: 048
  2. ALEVE (CAPLET) [Suspect]
     Indication: BACK PAIN

REACTIONS (2)
  - BACK PAIN [None]
  - HEADACHE [None]
